FAERS Safety Report 5681097-8 (Version None)
Quarter: 2008Q1

REPORT INFORMATION
  Report Type: 
  Country: None (occurrence: None)
  Receive Date: 20080325
  Receipt Date: 20080312
  Transmission Date: 20080703
  Serious: Yes (Death)
  Sender: FDA-Public Use
  Company Number: 2008AL001634

PATIENT
  Age: 71 Year
  Sex: Male

DRUGS (7)
  1. MIRTAZAPINE [Suspect]
     Indication: DRUG USE FOR UNKNOWN INDICATION
     Dosage: 45 MG;QD;PO
     Route: 048
     Dates: start: 19990101, end: 20080129
  2. SERTRALINE HCL [Suspect]
     Indication: DEPRESSION
     Dosage: 25 MG;QD;PO
     Route: 048
     Dates: start: 20080128, end: 20080129
  3. OXAZEPAM [Suspect]
     Dosage: 10 MG; QD;PO
     Route: 048
     Dates: start: 19990101, end: 20080130
  4. SOMADRIL COMP. [Concomitant]
  5. ENALAPRIL MALEATE [Concomitant]
  6. ZOLPIDEM [Concomitant]
  7. ASPIRIN [Concomitant]

REACTIONS (4)
  - ANXIETY [None]
  - COMPLETED SUICIDE [None]
  - DEPRESSION [None]
  - DRUG EFFECT DECREASED [None]
